FAERS Safety Report 6079931-5 (Version None)
Quarter: 2009Q1

REPORT INFORMATION
  Report Type: 
  Country: None (occurrence: None)
  Receive Date: 20090217
  Receipt Date: 20090208
  Transmission Date: 20090719
  Serious: Yes (Hospitalization, Other)
  Sender: FDA-Public Use
  Company Number: DE-BIOGENIDEC-2008BI029991

PATIENT
  Age: 60 Year
  Sex: Female
  Weight: 65 kg

DRUGS (12)
  1. TYSABRI [Suspect]
     Indication: MULTIPLE SCLEROSIS
     Route: 042
     Dates: start: 20080430
  2. ANTIHYPERTENSIVES [Concomitant]
  3. ANTI-MUSCARINIC BLADDER AGENTS [Concomitant]
  4. MULTI-VITAMINS [Concomitant]
  5. ZOPICLON [Concomitant]
  6. BACLOPHEN [Concomitant]
  7. OXYBUTININ-DRIDASE [Concomitant]
  8. LISINOPRIL [Concomitant]
  9. CARVEDILOL [Concomitant]
  10. ACTIVELLE [Concomitant]
  11. VITAMIN D [Concomitant]
  12. CEFUROXIME [Concomitant]

REACTIONS (1)
  - BLADDER TRANSITIONAL CELL CARCINOMA STAGE I [None]
